FAERS Safety Report 11878807 (Version 1)
Quarter: 2015Q4

REPORT INFORMATION
  Report Type: Report from Study
  Country: KR (occurrence: KR)
  Receive Date: 20151230
  Receipt Date: 20151230
  Transmission Date: 20160305
  Serious: Yes (Hospitalization)
  Sender: FDA-Public Use
  Company Number: KR-OTSUKA-2015_017220

PATIENT
  Age: 57 Year
  Sex: Male

DRUGS (13)
  1. INSULIN GLARGINE [Concomitant]
     Active Substance: INSULIN GLARGINE
     Indication: DIABETES MELLITUS
     Dosage: 38 IU, UNK
     Route: 058
     Dates: start: 20150120
  2. PREGABALIN. [Concomitant]
     Active Substance: PREGABALIN
     Indication: DIABETES MELLITUS
     Dosage: 150 MG, UNK
     Route: 048
     Dates: start: 20150225
  3. ALFACALCIDOL [Concomitant]
     Active Substance: ALFACALCIDOL
     Indication: PAPILLARY THYROID CANCER
     Dosage: 1 ?G, UNK
     Route: 048
     Dates: start: 20150812
  4. INSULIN GLULISINE [Concomitant]
     Active Substance: INSULIN GLULISINE
     Indication: DIABETES MELLITUS
     Dosage: 40 IU, UNK
     Route: 058
     Dates: start: 20150120
  5. CILOSTAZOL. [Suspect]
     Active Substance: CILOSTAZOL
     Indication: PRODUCT USED FOR UNKNOWN INDICATION
     Dosage: UNK
     Route: 065
  6. NORTRIPTYLINE [Concomitant]
     Active Substance: NORTRIPTYLINE
     Indication: DIABETES MELLITUS
     Dosage: 10 MG, UNK
     Route: 048
     Dates: start: 20150507
  7. CILOSTAZOL. [Concomitant]
     Active Substance: CILOSTAZOL
     Indication: CORONARY ARTERY STENOSIS
     Dosage: 200 MG, UNK
     Route: 048
     Dates: start: 20150128
  8. LOSARTAN. [Concomitant]
     Active Substance: LOSARTAN
     Indication: DIABETES MELLITUS
     Dosage: 50 MG, UNK
     Route: 048
     Dates: start: 20150120
  9. METFORMIN [Concomitant]
     Active Substance: METFORMIN HYDROCHLORIDE
     Indication: DIABETES MELLITUS
     Dosage: 1000 MG, UNK
     Route: 048
     Dates: start: 20150225
  10. CALCIUM CARBONATE. [Concomitant]
     Active Substance: CALCIUM CARBONATE
     Indication: PAPILLARY THYROID CANCER
     Dosage: 1000 MG, UNK
     Route: 048
     Dates: start: 20150812
  11. SITAGLIPTIN [Concomitant]
     Active Substance: SITAGLIPTIN
     Indication: DIABETES MELLITUS
     Dosage: 100 MG, UNK
     Route: 048
     Dates: start: 20150123
  12. THIOCTIC ACID [Concomitant]
     Active Substance: THIOCTIC ACID
     Indication: DIABETES MELLITUS
     Dosage: 300 MG, UNK
     Route: 048
     Dates: start: 20150806
  13. LEVOTHYROXINE. [Concomitant]
     Active Substance: LEVOTHYROXINE
     Indication: PAPILLARY THYROID CANCER
     Dosage: 0.15 MG, UNK
     Route: 048
     Dates: start: 20150826

REACTIONS (1)
  - Gastrointestinal stromal tumour [Recovering/Resolving]

NARRATIVE: CASE EVENT DATE: 20151002
